FAERS Safety Report 21135220 (Version 2)
Quarter: 2022Q4

REPORT INFORMATION
  Report Type: Spontaneous
  Country: US (occurrence: US)
  Receive Date: 20220727
  Receipt Date: 20221128
  Transmission Date: 20230113
  Serious: No
  Sender: FDA-Public Use
  Company Number: US-BRISTOL-MYERS SQUIBB COMPANY-2022-070985

PATIENT
  Age: 65 Year
  Sex: Male
  Weight: 77.5 kg

DRUGS (2)
  1. INREBIC [Suspect]
     Active Substance: FEDRATINIB HYDROCHLORIDE
     Indication: Dissociative identity disorder
     Route: 048
     Dates: start: 20210701
  2. INREBIC [Suspect]
     Active Substance: FEDRATINIB HYDROCHLORIDE
     Indication: Myelodysplastic syndrome
     Route: 048
     Dates: start: 20210701

REACTIONS (2)
  - Insomnia [Unknown]
  - Panic attack [Unknown]
